FAERS Safety Report 13160308 (Version 3)
Quarter: 2017Q2

REPORT INFORMATION
  Report Type: Spontaneous
  Country: US (occurrence: US)
  Receive Date: 20170127
  Receipt Date: 20170417
  Transmission Date: 20170830
  Serious: No
  Sender: FDA-Public Use
  Company Number: US-PFIZER INC-2017034255

PATIENT
  Age: 65 Year
  Sex: Male
  Weight: 79.38 kg

DRUGS (2)
  1. VIAGRA [Suspect]
     Active Substance: SILDENAFIL CITRATE
     Indication: ERECTILE DYSFUNCTION
     Dosage: 50 MG, AS NEEDED
     Route: 048
     Dates: start: 2016
  2. VIAGRA [Suspect]
     Active Substance: SILDENAFIL CITRATE
     Indication: BENIGN PROSTATIC HYPERPLASIA
     Dosage: TWO 50 MG TABLETS
     Dates: start: 201610, end: 201610

REACTIONS (5)
  - Intentional product use issue [Recovered/Resolved]
  - Drug ineffective [Not Recovered/Not Resolved]
  - Dizziness [Unknown]
  - Feeling abnormal [Recovered/Resolved]
  - Drug prescribing error [Not Recovered/Not Resolved]

NARRATIVE: CASE EVENT DATE: 2016
